FAERS Safety Report 24918117 (Version 2)
Quarter: 2025Q1

REPORT INFORMATION
  Report Type: Spontaneous
  Country: IT (occurrence: IT)
  Receive Date: 20250203
  Receipt Date: 20250219
  Transmission Date: 20250409
  Serious: Yes (Life-Threatening)
  Sender: AMERICAN REGENT
  Company Number: IT-AMERICAN REGENT INC-2025000508

PATIENT
  Age: 81 Year
  Sex: Female

DRUGS (1)
  1. FERINJECT [Suspect]
     Active Substance: FERRIC CARBOXYMALTOSE
     Indication: Product used for unknown indication
     Route: 042
     Dates: start: 20250107, end: 20250107

REACTIONS (8)
  - Tachypnoea [Recovering/Resolving]
  - Hypertensive crisis [Recovering/Resolving]
  - Pain [Recovering/Resolving]
  - Oxygen saturation decreased [Recovering/Resolving]
  - Respiratory distress [Recovering/Resolving]
  - Peripheral coldness [Recovering/Resolving]
  - Livedo reticularis [Recovering/Resolving]
  - Dyspnoea [Recovering/Resolving]

NARRATIVE: CASE EVENT DATE: 20250107
